FAERS Safety Report 4799046-3 (Version None)
Quarter: 2005Q4

REPORT INFORMATION
  Report Type: 
  Country: None (occurrence: None)
  Receive Date: 20051014
  Receipt Date: 20051011
  Transmission Date: 20060501
  Serious: Yes (Other)
  Sender: FDA-Public Use
  Company Number: US-MERCK-0510USA06548

PATIENT
  Age: 48 Year
  Sex: Female

DRUGS (11)
  1. FOSAMAX [Suspect]
     Indication: OSTEOPOROSIS
     Route: 048
     Dates: start: 20051005, end: 20051005
  2. PLAQUENIL [Concomitant]
     Route: 065
  3. METHOTREXATE [Concomitant]
     Route: 065
  4. [THERAPY UNSPECIFIED] [Concomitant]
     Route: 065
  5. EFFEXOR [Concomitant]
     Route: 065
  6. METFORMIN [Concomitant]
     Route: 065
  7. PROZAC [Concomitant]
     Route: 065
  8. LORTAB [Concomitant]
     Route: 065
  9. TRAZODONE HYDROCHLORIDE [Concomitant]
     Route: 065
  10. PYRIDOXINE [Concomitant]
     Route: 065
  11. CYANOCOBALAMIN [Concomitant]
     Route: 065

REACTIONS (4)
  - CHROMATURIA [None]
  - INCONTINENCE [None]
  - MUSCLE SPASMS [None]
  - PARALYSIS [None]
